FAERS Safety Report 24581659 (Version 1)
Quarter: 2024Q4

REPORT INFORMATION
  Report Type: Spontaneous
  Country: CN (occurrence: CN)
  Receive Date: 20241105
  Receipt Date: 20241105
  Transmission Date: 20250115
  Serious: Yes (Other)
  Sender: PFIZER
  Company Number: CN-PFIZER INC-PV202400142558

PATIENT
  Age: 28 Year
  Sex: Female
  Weight: 74 kg

DRUGS (4)
  1. HEMABATE [Suspect]
     Active Substance: CARBOPROST TROMETHAMINE
     Indication: Haemorrhage prophylaxis
     Dosage: 1 ML, 1X/DAY
     Route: 030
     Dates: start: 20241025, end: 20241025
  2. HEMABATE [Suspect]
     Active Substance: CARBOPROST TROMETHAMINE
     Indication: Uterine hypotonus
  3. OXYTOCIN [Concomitant]
     Active Substance: OXYTOCIN
     Indication: Haemorrhage prophylaxis
     Dosage: 10 IU, 1X/DAY
     Route: 019
     Dates: start: 20241025, end: 20241025
  4. OXYTOCIN [Concomitant]
     Active Substance: OXYTOCIN
     Indication: Uterine hypotonus

REACTIONS (5)
  - Electrocardiogram T wave inversion [Recovering/Resolving]
  - Chest pain [Recovering/Resolving]
  - Dyspnoea [Recovering/Resolving]
  - Cough [Recovering/Resolving]
  - Off label use [Unknown]

NARRATIVE: CASE EVENT DATE: 20241025
